FAERS Safety Report 5728665-2 (Version None)
Quarter: 2008Q2

REPORT INFORMATION
  Report Type: 
  Country: None (occurrence: None)
  Receive Date: 20080502
  Receipt Date: 20080502
  Transmission Date: 20081010
  Serious: Yes (Life-Threatening, Hospitalization)
  Sender: FDA-Public Use
  Company Number: None

PATIENT
  Sex: Female
  Weight: 58.9676 kg

DRUGS (1)
  1. MYLAN 0.25 MG ACTAVIS BERTEK/DIGITEK [Suspect]
     Indication: ARRHYTHMIA
     Dosage: 1 TABLET DAILY PO
     Route: 048
     Dates: start: 20080428, end: 20080428

REACTIONS (7)
  - BLOOD POTASSIUM DECREASED [None]
  - CARDIOACTIVE DRUG LEVEL INCREASED [None]
  - DYSPNOEA [None]
  - EATING DISORDER [None]
  - INCOHERENT [None]
  - INCORRECT DOSE ADMINISTERED [None]
  - PHARMACEUTICAL PRODUCT COMPLAINT [None]
